FAERS Safety Report 8422295-X (Version None)
Quarter: 2012Q2

REPORT INFORMATION
  Report Type: 
  Country: None (occurrence: None)
  Receive Date: 20120323
  Receipt Date: 20110208
  Transmission Date: 20120825
  Serious: Yes (Hospitalization)
  Sender: FDA-Public Use
  Company Number: 163-21880-11021243

PATIENT
  Age: 67 Year
  Sex: Male

DRUGS (6)
  1. PERCOCET [Concomitant]
  2. POTASSIUM CHLORIDE [Concomitant]
  3. TRAMADOL HCL [Concomitant]
  4. MULTIVITAMIN [Concomitant]
  5. LOVENOX [Concomitant]
  6. REVLIMID [Suspect]
     Indication: MYELODYSPLASTIC SYNDROME
     Dosage: 5 MG, 1 IN 1 D, PO
     Route: 048
     Dates: start: 20090923

REACTIONS (1)
  - FULL BLOOD COUNT DECREASED [None]
